FAERS Safety Report 24928135 (Version 2)
Quarter: 2025Q1

REPORT INFORMATION
  Report Type: Spontaneous
  Country: IE (occurrence: IE)
  Receive Date: 20250205
  Receipt Date: 20250226
  Transmission Date: 20250408
  Serious: Yes (Life-Threatening, Disabling, Other)
  Sender: ORGANON
  Company Number: None

PATIENT
  Age: 27 Year
  Sex: Male
  Weight: 83 kg

DRUGS (2)
  1. FINASTERIDE [Suspect]
     Active Substance: FINASTERIDE
     Indication: Alopecia
     Route: 048
     Dates: start: 20221101, end: 20240501
  2. LONITEN [Concomitant]
     Active Substance: MINOXIDIL
     Indication: Alopecia
     Route: 048
     Dates: start: 20221101

REACTIONS (8)
  - Depression [Recovered/Resolved]
  - Suicidal ideation [Recovered/Resolved]
  - Anxiety [Recovered/Resolved]
  - Insomnia [Recovered/Resolved]
  - Lethargy [Recovered/Resolved]
  - Libido decreased [Recovering/Resolving]
  - Brain fog [Recovered/Resolved]
  - Erectile dysfunction [Recovered/Resolved]

NARRATIVE: CASE EVENT DATE: 20230101
